FAERS Safety Report 15678655 (Version 1)
Quarter: 2018Q4

REPORT INFORMATION
  Report Type: Spontaneous
  Country: US (occurrence: US)
  Receive Date: 20181130
  Receipt Date: 20181130
  Transmission Date: 20190205
  Serious: Yes (Hospitalization)
  Sender: FDA-Public Use
  Company Number: None

PATIENT
  Age: 59 Year
  Sex: Male

DRUGS (7)
  1. ESOMEPRAZOLE MAG CAP 40MG DR [Concomitant]
     Active Substance: ESOMEPRAZOLE MAGNESIUM
     Dates: start: 20180706
  2. LEVOCETIRIZINE TAB 5MG [Concomitant]
     Dates: start: 20180927
  3. POT CHLORIDE CAP 10MEQ ER [Concomitant]
     Dates: start: 20181004
  4. LISINOPRIL TAB 20MG [Concomitant]
     Active Substance: LISINOPRIL
     Dates: start: 20180927
  5. FLUTICASONE SPR 50MCG [Concomitant]
     Active Substance: FLUTICASONE
     Dates: start: 20180705
  6. ENBREL [Suspect]
     Active Substance: ETANERCEPT
     Indication: RHEUMATOID ARTHRITIS
     Dosage: ?          OTHER FREQUENCY:ONCE A WEEK;?
     Route: 058
  7. LEFLUNOMIDE TAB 20MG [Concomitant]
     Dates: start: 20180705

REACTIONS (1)
  - Cardiac infection [None]

NARRATIVE: CASE EVENT DATE: 20181118
